FAERS Safety Report 23913010 (Version 1)
Quarter: 2024Q2

REPORT INFORMATION
  Report Type: Spontaneous
  Country: US (occurrence: US)
  Receive Date: 20240529
  Receipt Date: 20240529
  Transmission Date: 20240716
  Serious: Yes (Other)
  Sender: FDA-Public Use
  Company Number: US-ROCHE-3565217

PATIENT

DRUGS (1)
  1. GAVRETO [Suspect]
     Active Substance: PRALSETINIB
     Indication: Non-small cell lung cancer metastatic
     Dosage: UNK
     Route: 048

REACTIONS (9)
  - Malignant neoplasm progression [Unknown]
  - Limb discomfort [Unknown]
  - Pain in extremity [Unknown]
  - Depression [Unknown]
  - Poor quality sleep [Unknown]
  - Diarrhoea [Unknown]
  - Nausea [Unknown]
  - Vomiting [Unknown]
  - Abdominal discomfort [Unknown]
